FAERS Safety Report 6129728-2 (Version None)
Quarter: 2009Q1

REPORT INFORMATION
  Report Type: 
  Country: None (occurrence: None)
  Receive Date: 20090324
  Receipt Date: 20090318
  Transmission Date: 20090719
  Serious: Yes (Hospitalization, Disabling)
  Sender: FDA-Public Use
  Company Number: A0772401A

PATIENT
  Age: 47 Year
  Sex: Female

DRUGS (2)
  1. FLOVENT [Suspect]
     Indication: BRONCHITIS
     Dosage: 2PUFF TWICE PER DAY
     Route: 065
     Dates: start: 20090204, end: 20090308
  2. SERTRALINE HCL [Concomitant]
     Route: 065
     Dates: start: 20070701

REACTIONS (7)
  - EAR PAIN [None]
  - EYE PAIN [None]
  - HYPOAESTHESIA [None]
  - HYPOAESTHESIA EYE [None]
  - HYPOAESTHESIA FACIAL [None]
  - PAIN IN JAW [None]
  - PHARYNGEAL HYPOAESTHESIA [None]
